FAERS Safety Report 23573303 (Version 1)
Quarter: 2024Q1

REPORT INFORMATION
  Report Type: Report from Study
  Country: US (occurrence: US)
  Receive Date: 20240228
  Receipt Date: 20240228
  Transmission Date: 20240410
  Serious: Yes (Hospitalization)
  Sender: FDA-Public Use
  Company Number: US-BoehringerIngelheim-2023-BI-254900

PATIENT
  Age: 79 Year
  Sex: Male

DRUGS (3)
  1. OFEV [Suspect]
     Active Substance: NINTEDANIB
     Indication: Idiopathic pulmonary fibrosis
     Route: 048
     Dates: start: 20230620
  2. OFEV [Suspect]
     Active Substance: NINTEDANIB
     Route: 048
  3. OFEV [Suspect]
     Active Substance: NINTEDANIB
     Route: 048

REACTIONS (14)
  - Medical device implantation [Unknown]
  - Coronary arterial stent insertion [Unknown]
  - Dyspnoea [Unknown]
  - Haemoptysis [Unknown]
  - Feeling abnormal [Unknown]
  - Cough [Not Recovered/Not Resolved]
  - Abdominal pain upper [Unknown]
  - Illness [Unknown]
  - Blood sodium decreased [Unknown]
  - Fatigue [Unknown]
  - Headache [Unknown]
  - Nausea [Unknown]
  - Abdominal discomfort [Unknown]
  - Multiple allergies [Unknown]

NARRATIVE: CASE EVENT DATE: 20230801
